FAERS Safety Report 4268731-4 (Version None)
Quarter: 2004Q1

REPORT INFORMATION
  Report Type: 
  Country: None (occurrence: None)
  Receive Date: 20040112
  Receipt Date: 20031006
  Transmission Date: 20041129
  Serious: Yes (Other)
  Sender: FDA-Public Use
  Company Number: PHEH2003US09261

PATIENT
  Age: 49 Year
  Sex: Female
  Weight: 113 kg

DRUGS (6)
  1. ZESTORETIC [Concomitant]
  2. AVANDIA [Concomitant]
  3. GLYNASE [Concomitant]
  4. GLUCOPHAGE ^ABIC^ [Concomitant]
  5. CLOZARIL [Suspect]
     Indication: SCHIZOPHRENIA
     Dosage: 50 MG, QD
     Route: 048
     Dates: start: 19930527, end: 20031014
  6. ABILIFY                                 /USA/ [Concomitant]

REACTIONS (2)
  - BONE MARROW TRANSPLANT [None]
  - LEUKAEMIA [None]
